FAERS Safety Report 15485618 (Version 1)
Quarter: 2018Q4

REPORT INFORMATION
  Report Type: Spontaneous
  Country: FR (occurrence: FR)
  Receive Date: 20181010
  Receipt Date: 20181010
  Transmission Date: 20190205
  Serious: Yes (Hospitalization)
  Sender: FDA-Public Use
  Company Number: PHHY2018FR119281

PATIENT
  Age: 32 Year
  Sex: Male
  Weight: 72 kg

DRUGS (1)
  1. PREDNISONE. [Suspect]
     Active Substance: PREDNISONE
     Indication: SELF-MEDICATION
     Dosage: UNK
     Route: 048

REACTIONS (2)
  - Folliculitis [Recovering/Resolving]
  - Skin necrosis [Recovering/Resolving]

NARRATIVE: CASE EVENT DATE: 201807
